FAERS Safety Report 14286282 (Version 3)
Quarter: 2019Q4

REPORT INFORMATION
  Report Type: Spontaneous
  Country: GB (occurrence: US)
  Receive Date: 20171214
  Receipt Date: 20191205
  Transmission Date: 20200122
  Serious: No
  Sender: FDA-Public Use
  Company Number: US-ASTELLAS-2017US028490

PATIENT
  Sex: Female

DRUGS (2)
  1. TARCEVA [Suspect]
     Active Substance: ERLOTINIB HYDROCHLORIDE
     Indication: BREAST CANCER
     Route: 048
     Dates: start: 20170121
  2. TARCEVA [Suspect]
     Active Substance: ERLOTINIB HYDROCHLORIDE
     Indication: BREAST CANCER
     Route: 048
     Dates: start: 20170201

REACTIONS (6)
  - Off label use [Unknown]
  - Dry skin [Unknown]
  - Rash [Unknown]
  - Intentional product use issue [Unknown]
  - Pain [Unknown]
  - Nausea [Unknown]
